FAERS Safety Report 23462705 (Version 3)
Quarter: 2024Q2

REPORT INFORMATION
  Report Type: Report from Study
  Country: CN (occurrence: CN)
  Receive Date: 20240131
  Receipt Date: 20240504
  Transmission Date: 20240716
  Serious: Yes (Hospitalization)
  Sender: FDA-Public Use
  Company Number: CN-002147023-NVSC2024CN014727

PATIENT

DRUGS (3)
  1. LEQVIO [Suspect]
     Active Substance: INCLISIRAN SODIUM
     Indication: Hyperlipidaemia
     Dosage: 1 DOSAGE FORM (1.5ML: 284MG)
     Route: 058
     Dates: start: 20231225, end: 20231225
  2. LEQVIO [Suspect]
     Active Substance: INCLISIRAN SODIUM
     Dosage: 1 DOSAGE FORM
     Route: 058
     Dates: start: 20240315, end: 20240315
  3. EZETIMIBE [Concomitant]
     Active Substance: EZETIMIBE
     Indication: Product used for unknown indication
     Dosage: 1 DOSAGE FORM, QD
     Route: 048

REACTIONS (8)
  - Angina pectoris [Unknown]
  - Oedema peripheral [Not Recovered/Not Resolved]
  - Emotional distress [Unknown]
  - Insomnia [Unknown]
  - Peripheral swelling [Unknown]
  - Low density lipoprotein abnormal [Unknown]
  - Drug ineffective [Unknown]
  - Inappropriate schedule of product administration [Unknown]

NARRATIVE: CASE EVENT DATE: 20240312
